FAERS Safety Report 6492705-6 (Version None)
Quarter: 2009Q4

REPORT INFORMATION
  Report Type: 
  Country: None (occurrence: None)
  Receive Date: 20091211
  Receipt Date: 20091211
  Transmission Date: 20100525
  Serious: Yes (Other)
  Sender: FDA-Public Use
  Company Number: None

PATIENT
  Age: 51 Year
  Sex: Female
  Weight: 57 kg

DRUGS (12)
  1. MYCOPHENOLATE (GENERIC) [Suspect]
     Indication: MULTIPLE SCLEROSIS
     Dosage: 1000 MG PO BID
     Route: 048
     Dates: start: 20090920
  2. MYCOPHENOLATE (GENERIC) [Suspect]
     Indication: MULTIPLE SCLEROSIS
     Dosage: 1000 MG PO BID
     Route: 048
     Dates: start: 20090930
  3. PROGESTERONE [Concomitant]
  4. TRAZODONE HCL [Concomitant]
  5. ESTRADIOL [Concomitant]
  6. METOPROLOL [Concomitant]
  7. DHEA [Concomitant]
  8. VIT D 3 [Concomitant]
  9. VIT B12 [Concomitant]
  10. FOSAMAX [Concomitant]
  11. HYDROCHLOROTHIAZIDE [Concomitant]
  12. CA [Concomitant]

REACTIONS (1)
  - OEDEMA PERIPHERAL [None]
